APPROVED DRUG PRODUCT: TETRABENAZINE
Active Ingredient: TETRABENAZINE
Strength: 25MG
Dosage Form/Route: TABLET;ORAL
Application: A210544 | Product #002 | TE Code: AB
Applicant: CHARTWELL RX SCIENCES LLC
Approved: Apr 20, 2018 | RLD: No | RS: No | Type: RX